APPROVED DRUG PRODUCT: ARSENIC TRIOXIDE
Active Ingredient: ARSENIC TRIOXIDE
Strength: 1MG/ML
Dosage Form/Route: INJECTABLE;INJECTION
Application: A208231 | Product #001 | TE Code: AP
Applicant: FRESENIUS KABI USA LLC
Approved: Aug 31, 2018 | RLD: No | RS: Yes | Type: RX